FAERS Safety Report 9157152 (Version 1)
Quarter: 2013Q1

REPORT INFORMATION
  Report Type: Spontaneous
  Country: US (occurrence: US)
  Receive Date: 20130312
  Receipt Date: 20130312
  Transmission Date: 20140127
  Serious: Yes (Other)
  Sender: FDA-Public Use
  Company Number: US-PFIZER INC-2013080291

PATIENT
  Sex: Female

DRUGS (4)
  1. LYRICA [Suspect]
     Dosage: 100 MG, 2X/DAY
  2. CLONAZEPAM [Suspect]
     Dosage: HALF A TABLET, TWO TIMES A DAY
  3. ATENOLOL [Concomitant]
     Indication: BLOOD PRESSURE
     Dosage: UNK
  4. OLANZAPINE [Concomitant]
     Indication: DEPRESSION
     Dosage: UNK, ONE EVERY NIGHT AT BEDTIME

REACTIONS (8)
  - Bursitis [Unknown]
  - Lip swelling [Unknown]
  - Vomiting [Unknown]
  - Fall [Unknown]
  - Drug effect incomplete [Unknown]
  - Memory impairment [Unknown]
  - Intentional drug misuse [Unknown]
  - Malaise [Unknown]
